FAERS Safety Report 17049124 (Version 1)
Quarter: 2019Q4

REPORT INFORMATION
  Report Type: Spontaneous
  Country: DE (occurrence: DE)
  Receive Date: 20191119
  Receipt Date: 20191119
  Transmission Date: 20200122
  Serious: Yes (Other)
  Sender: FDA-Public Use
  Company Number: NVSC2019DE038046

PATIENT
  Age: 17 Year

DRUGS (1)
  1. CERTICAN [Suspect]
     Active Substance: EVEROLIMUS
     Indication: HEART TRANSPLANT
     Dosage: UNK
     Route: 065

REACTIONS (6)
  - Bone marrow failure [Unknown]
  - Immunosuppression [Unknown]
  - Epstein-Barr virus antibody positive [Unknown]
  - Post transplant lymphoproliferative disorder [Unknown]
  - Diarrhoea [Unknown]
  - Immunosuppressant drug level increased [Unknown]

NARRATIVE: CASE EVENT DATE: 2019
